FAERS Safety Report 14406631 (Version 5)
Quarter: 2021Q1

REPORT INFORMATION
  Report Type: Report from Study
  Country: CA (occurrence: CA)
  Receive Date: 20180118
  Receipt Date: 20210312
  Transmission Date: 20210419
  Serious: Yes (Other)
  Sender: FDA-Public Use
  Company Number: PHHY2018CA005314

PATIENT
  Age: 48 Year
  Sex: Female

DRUGS (2)
  1. GILENYA [Suspect]
     Active Substance: FINGOLIMOD HYDROCHLORIDE
     Indication: RELAPSING-REMITTING MULTIPLE SCLEROSIS
     Dosage: UNK
     Route: 048
     Dates: start: 20151215
  2. GILENYA [Suspect]
     Active Substance: FINGOLIMOD HYDROCHLORIDE
     Dosage: GILENYA 5 DAYS A WEEK
     Route: 048

REACTIONS (8)
  - Heart rate irregular [Unknown]
  - Palpitations [Unknown]
  - Headache [Unknown]
  - Inappropriate schedule of product administration [Unknown]
  - Bradycardia [Recovered/Resolved]
  - Palpitations [Recovered/Resolved]
  - Nail discolouration [Unknown]
  - Lymphocyte count decreased [Unknown]

NARRATIVE: CASE EVENT DATE: 20171231
